FAERS Safety Report 13989360 (Version 2)
Quarter: 2021Q2

REPORT INFORMATION
  Report Type: Spontaneous
  Country: US (occurrence: US)
  Receive Date: 20170920
  Receipt Date: 20210514
  Transmission Date: 20210716
  Serious: No
  Sender: FDA-Public Use
  Company Number: US-EMD SERONO-8181677

PATIENT
  Age: 62 Year
  Sex: Male

DRUGS (11)
  1. FISH OIL                           /00492901/ [Concomitant]
     Active Substance: COD LIVER OIL
     Indication: PRODUCT USED FOR UNKNOWN INDICATION
  2. ADVIL (MEFENAMIC ACID) [Concomitant]
     Active Substance: MEFENAMIC ACID
     Indication: PRODUCT USED FOR UNKNOWN INDICATION
  3. TERIFLUNOMIDE. [Suspect]
     Active Substance: TERIFLUNOMIDE
     Indication: MULTIPLE SCLEROSIS
  4. TERIFLUNOMIDE. [Suspect]
     Active Substance: TERIFLUNOMIDE
     Dosage: 29?MAY?2018
     Route: 048
  5. VITAMIN D3 [Concomitant]
     Active Substance: CHOLECALCIFEROL
     Indication: PRODUCT USED FOR UNKNOWN INDICATION
  6. REBIF [Suspect]
     Active Substance: INTERFERON BETA-1A
     Indication: MULTIPLE SCLEROSIS
  7. TERIFLUNOMIDE. [Suspect]
     Active Substance: TERIFLUNOMIDE
     Dosage: 30?MAY?2018
     Route: 048
  8. AMPHETAMINE SULFATE. [Concomitant]
     Active Substance: AMPHETAMINE SULFATE
     Indication: PRODUCT USED FOR UNKNOWN INDICATION
  9. DALFAMPRIDINE. [Suspect]
     Active Substance: DALFAMPRIDINE
     Indication: PRODUCT USED FOR UNKNOWN INDICATION
  10. LEVOTHYROXINE SODIUM. [Concomitant]
     Active Substance: LEVOTHYROXINE SODIUM
     Indication: PRODUCT USED FOR UNKNOWN INDICATION
  11. AMPYRA [Suspect]
     Active Substance: DALFAMPRIDINE
     Indication: MULTIPLE SCLEROSIS
     Dosage: 13?AUG?2016
     Route: 048
     Dates: end: 20161007

REACTIONS (20)
  - Injection site reaction [Unknown]
  - Intervertebral disc protrusion [Unknown]
  - Oedema peripheral [Unknown]
  - Disturbance in attention [Unknown]
  - Alopecia [Unknown]
  - Upper limb fracture [Unknown]
  - Mobility decreased [Unknown]
  - Rib fracture [Unknown]
  - Arthralgia [Unknown]
  - Fatigue [Unknown]
  - Hypoaesthesia [Unknown]
  - Injection site erythema [Unknown]
  - Diarrhoea [Unknown]
  - Weight decreased [Unknown]
  - Gait disturbance [Unknown]
  - Influenza like illness [Unknown]
  - Full blood count decreased [Unknown]
  - Eructation [Unknown]
  - Scapula fracture [Unknown]
  - Fall [Unknown]

NARRATIVE: CASE EVENT DATE: 201612
